FAERS Safety Report 5411176-1 (Version None)
Quarter: 2007Q3

REPORT INFORMATION
  Report Type: 
  Country: None (occurrence: None)
  Receive Date: 20070810
  Receipt Date: 20070806
  Transmission Date: 20080115
  Serious: Yes (Hospitalization)
  Sender: FDA-Public Use
  Company Number: A0668394A

PATIENT
  Age: 73 Year
  Sex: Female

DRUGS (2)
  1. AVANDIA [Suspect]
     Dosage: 2MG TWICE PER DAY
     Route: 048
     Dates: start: 20070401, end: 20070501
  2. BENAZEPRIL HYDROCHLORIDE [Concomitant]

REACTIONS (2)
  - APHASIA [None]
  - HYPOGLYCAEMIA [None]
